FAERS Safety Report 21719904 (Version 1)
Quarter: 2022Q4

REPORT INFORMATION
  Report Type: Other
  Country: US (occurrence: US)
  Receive Date: 20221213
  Receipt Date: 20221213
  Transmission Date: 20230113
  Serious: Yes (Hospitalization, Other)
  Sender: FDA-Public Use
  Company Number: US-HLS-202104393

PATIENT
  Age: 59 Year
  Sex: Male

DRUGS (13)
  1. CLOZAPINE [Suspect]
     Active Substance: CLOZAPINE
     Indication: Product used for unknown indication
     Dosage: 250MG BID
     Route: 065
     Dates: start: 201712
  2. CLOZAPINE [Suspect]
     Active Substance: CLOZAPINE
     Indication: Product used for unknown indication
     Dosage: 250MG BID
     Route: 065
     Dates: start: 2005, end: 2014
  3. CLOZAPINE [Suspect]
     Active Substance: CLOZAPINE
     Indication: Product used for unknown indication
     Dosage: UNKNOWN
     Route: 065
     Dates: start: 201504, end: 201505
  4. PEGFILGRASTIM [Concomitant]
     Active Substance: PEGFILGRASTIM
     Dosage: 300 MG SUBCUTANEOUSLY, THREE TIMES WEEKLY
     Route: 065
  5. OLANZAPINE [Concomitant]
     Active Substance: OLANZAPINE
     Dosage: 2.5 MG TWICE A DAY (BID) AS NEEDED
     Route: 065
  6. OLANZAPINE [Concomitant]
     Active Substance: OLANZAPINE
     Dosage: 40MG DAILY
     Route: 065
  7. ARIPIPRAZOLE [Concomitant]
     Active Substance: ARIPIPRAZOLE
     Dosage: 60MG DAILY
     Route: 065
  8. PIMAVANSERIN [Concomitant]
     Active Substance: PIMAVANSERIN
     Dosage: 34MG DAILY
     Route: 065
  9. LITHIUM [Concomitant]
     Active Substance: LITHIUM
     Dosage: 300MG DAILY
     Route: 065
  10. LORAZEPAM [Concomitant]
     Active Substance: LORAZEPAM
     Dosage: 0.5 MG LORAZEPAM ORALLY EVERY 6 HOURS AS NEEDED
     Route: 065
  11. HYDROXYZINE [Concomitant]
     Active Substance: HYDROXYZINE HYDROCHLORIDE
     Dosage: 25 MG HYDROXYZINE BID
     Route: 065
  12. BENZTROPINE [Concomitant]
     Active Substance: BENZTROPINE
     Dosage: 0.5 MG DAILY
     Route: 065
  13. TRAZODONE [Concomitant]
     Active Substance: TRAZODONE HYDROCHLORIDE
     Dosage: 100 MG AT BEDTIME
     Route: 065

REACTIONS (6)
  - Neutropenia [Unknown]
  - Anxiety [Unknown]
  - Hallucination, auditory [Unknown]
  - Paranoia [Unknown]
  - Delusion [Unknown]
  - Suicidal ideation [Unknown]
